FAERS Safety Report 17270636 (Version 2)
Quarter: 2020Q1

REPORT INFORMATION
  Report Type: Spontaneous
  Country: JP (occurrence: JP)
  Receive Date: 20200114
  Receipt Date: 20200206
  Transmission Date: 20200409
  Serious: Yes (Hospitalization, Other)
  Sender: FDA-Public Use
  Company Number: JP-TAKEDA-2020TJP000279AA

PATIENT
  Age: 6 Decade
  Sex: Male

DRUGS (1)
  1. NESINA [Suspect]
     Active Substance: ALOGLIPTIN BENZOATE
     Indication: TYPE 2 DIABETES MELLITUS
     Dosage: 25 MILLIGRAM
     Route: 048

REACTIONS (1)
  - Bile duct cancer [Not Recovered/Not Resolved]

NARRATIVE: CASE EVENT DATE: 201909
